FAERS Safety Report 8178329-3 (Version None)
Quarter: 2012Q1

REPORT INFORMATION
  Report Type: 
  Country: None (occurrence: None)
  Receive Date: 20120301
  Receipt Date: 20120227
  Transmission Date: 20120608
  Serious: Yes (Other)
  Sender: FDA-Public Use
  Company Number: US-BAYER-2012-019556

PATIENT
  Age: 46 Year
  Sex: Male
  Weight: 91 kg

DRUGS (3)
  1. POTASSIUM IODIDE [Concomitant]
  2. MULTIVITAMINS, OTHER COMBINATIONS [Concomitant]
  3. ASPIRIN [Suspect]
     Dosage: TOOK 5 OR 6
     Route: 048
     Dates: start: 20120101, end: 20120101

REACTIONS (4)
  - PAIN [None]
  - ABDOMINAL PAIN [None]
  - CONSTIPATION [None]
  - HAEMATOCHEZIA [None]
